FAERS Safety Report 16219002 (Version 1)
Quarter: 2019Q2

REPORT INFORMATION
  Report Type: Spontaneous
  Country: JP (occurrence: JP)
  Receive Date: 20190419
  Receipt Date: 20190419
  Transmission Date: 20190711
  Serious: Yes (Hospitalization, Other)
  Sender: FDA-Public Use
  Company Number: JP-TAKEDA-2019TUS023878

PATIENT
  Age: 81 Year
  Sex: Female

DRUGS (2)
  1. FEBURIC [Suspect]
     Active Substance: FEBUXOSTAT
     Dosage: 20 MILLIGRAM, QD
     Route: 048
  2. FEBURIC [Suspect]
     Active Substance: FEBUXOSTAT
     Indication: HYPERURICAEMIA
     Dosage: 10 MILLIGRAM, QD
     Route: 048
     Dates: start: 20150727

REACTIONS (4)
  - Cardiac failure [Recovered/Resolved]
  - Cardiac failure [Recovered/Resolved]
  - Cardiac failure [Recovering/Resolving]
  - Cardiac failure [Recovering/Resolving]

NARRATIVE: CASE EVENT DATE: 20160331
